FAERS Safety Report 24794389 (Version 1)
Quarter: 2024Q4

REPORT INFORMATION
  Report Type: Spontaneous
  Country: PT (occurrence: PT)
  Receive Date: 20241231
  Receipt Date: 20241231
  Transmission Date: 20250114
  Serious: Yes (Other)
  Sender: RANBAXY
  Company Number: PT-SUN PHARMACEUTICAL INDUSTRIES LTD-2024R1-487156

PATIENT
  Age: 56 Year
  Sex: Female

DRUGS (4)
  1. FUROSEMIDE [Suspect]
     Active Substance: FUROSEMIDE
     Indication: Oedema peripheral
     Dosage: 180 MILLIGRAM
     Route: 042
  2. FUROSEMIDE [Suspect]
     Active Substance: FUROSEMIDE
     Dosage: 80 MILLIGRAM, OS
     Route: 042
  3. FUROSEMIDE [Suspect]
     Active Substance: FUROSEMIDE
     Dosage: 360 MG PER OS FOUR TIMES A WEEK
     Route: 042
  4. METOLAZONE [Suspect]
     Active Substance: METOLAZONE
     Indication: Oedema peripheral
     Dosage: 2.5 MG THREE TIMES A WEEK
     Route: 065

REACTIONS (2)
  - Ascites [Unknown]
  - Weight decreased [Unknown]
